FAERS Safety Report 19747251 (Version 1)
Quarter: 2021Q3

REPORT INFORMATION
  Report Type: Spontaneous
  Country: DE (occurrence: DE)
  Receive Date: 20210825
  Receipt Date: 20210825
  Transmission Date: 20211014
  Serious: Yes (Other)
  Sender: FDA-Public Use
  Company Number: NVSC2021DE186677

PATIENT
  Age: 90 Month
  Sex: Male

DRUGS (2)
  1. TRAMETINIB [Suspect]
     Active Substance: TRAMETINIB
     Dosage: 0.023 MG/KG, QD
     Route: 065
  2. TRAMETINIB [Suspect]
     Active Substance: TRAMETINIB
     Indication: RIGHT VENTRICLE OUTFLOW TRACT OBSTRUCTION
     Dosage: 0.011 MG/KG, QD
     Route: 065

REACTIONS (6)
  - Right ventricle outflow tract obstruction [Unknown]
  - Product use in unapproved indication [Unknown]
  - Product use issue [Unknown]
  - Condition aggravated [Unknown]
  - Dry skin [Unknown]
  - COVID-19 [Recovered/Resolved]
